FAERS Safety Report 9174782 (Version 1)
Quarter: 2013Q1

REPORT INFORMATION
  Report Type: Spontaneous
  Country: US (occurrence: US)
  Receive Date: 20130320
  Receipt Date: 20130320
  Transmission Date: 20140127
  Serious: Yes (Other)
  Sender: FDA-Public Use
  Company Number: US-PFIZER INC-2013088865

PATIENT
  Age: 71 Year
  Sex: Female
  Weight: 97.05 kg

DRUGS (2)
  1. ZYVOX [Suspect]
     Indication: INFECTION
     Dosage: 600 MG, 2X/DAY
     Dates: start: 201303, end: 20130311
  2. DIOVAN (VALSARTAN) [Concomitant]
     Indication: HYPERTENSION
     Dosage: UNK, 1X/DAY

REACTIONS (2)
  - Lip swelling [Recovered/Resolved]
  - Swollen tongue [Recovered/Resolved]
